FAERS Safety Report 21320302 (Version 3)
Quarter: 2023Q1

REPORT INFORMATION
  Report Type: Spontaneous
  Country: US (occurrence: US)
  Receive Date: 20220911
  Receipt Date: 20230117
  Transmission Date: 20230418
  Serious: No
  Sender: FDA-Public Use
  Company Number: US-SA-SAC20220909000196

PATIENT
  Sex: Male

DRUGS (1)
  1. DUPIXENT [Suspect]
     Active Substance: DUPILUMAB
     Dosage: 300 MG, OTHER
     Route: 058
     Dates: end: 20220930

REACTIONS (4)
  - Headache [Recovered/Resolved]
  - Illness [Unknown]
  - Ocular hyperaemia [Unknown]
  - Drug effect less than expected [Unknown]
